FAERS Safety Report 9236205 (Version 1)
Quarter: 2013Q2

REPORT INFORMATION
  Report Type: Spontaneous
  Country: US (occurrence: None)
  Receive Date: 20130416
  Receipt Date: 20130416
  Transmission Date: 20140414
  Serious: No
  Sender: FDA-Public Use
  Company Number: None

PATIENT
  Sex: Female
  Weight: 113.4 kg

DRUGS (1)
  1. AMBIEN [Suspect]
     Dosage: 10 MG NIGHTLY
     Dates: start: 20021102

REACTIONS (3)
  - Nightmare [None]
  - Aggression [None]
  - Dependence [None]
